FAERS Safety Report 9586011 (Version 1)
Quarter: 2013Q4

REPORT INFORMATION
  Report Type: Spontaneous
  Country: US (occurrence: None)
  Receive Date: 20131002
  Receipt Date: 20131002
  Transmission Date: 20140711
  Serious: Yes (Hospitalization)
  Sender: FDA-Public Use
  Company Number: None

PATIENT
  Age: 65 Year
  Sex: Female
  Weight: 60.7 kg

DRUGS (4)
  1. LEUCOVORIN CALCIUM [Suspect]
     Indication: PANCREATIC CARCINOMA STAGE IV
     Dosage: DOSE LEVEL 2 ON 8/9
     Dates: start: 20130809
  2. 5 FU [Suspect]
     Indication: PANCREATIC CARCINOMA STAGE IV
     Dosage: 20% REDUCTION ON 8/22
     Dates: start: 20130822
  3. OXALIPLATIN [Suspect]
  4. FOLFOX-ABRAXANE [Suspect]

REACTIONS (3)
  - Disease progression [None]
  - Jaundice [None]
  - Pancreatic carcinoma stage IV [None]
